FAERS Safety Report 8842107 (Version 1)
Quarter: 2012Q4

REPORT INFORMATION
  Report Type: Spontaneous
  Country: US (occurrence: None)
  Receive Date: 20121015
  Receipt Date: 20121015
  Transmission Date: 20130627
  Serious: No
  Sender: FDA-Public Use
  Company Number: None

PATIENT
  Age: 32 Year
  Sex: Female
  Weight: 104.33 kg

DRUGS (2)
  1. MONTELUKAST [Suspect]
     Indication: ASTHMA
     Dosage: 1 tablet 1 per day, po
     Route: 048
     Dates: start: 20120919, end: 20121009
  2. MONTELUKAST [Suspect]
     Indication: ALLERGY
     Dosage: 1 tablet 1 per day, po
     Route: 048
     Dates: start: 20120919, end: 20121009

REACTIONS (6)
  - Mood altered [None]
  - Stress [None]
  - Agitation [None]
  - Aggression [None]
  - Product substitution issue [None]
  - Product quality issue [None]
